FAERS Safety Report 17296006 (Version 1)
Quarter: 2020Q1

REPORT INFORMATION
  Report Type: Spontaneous
  Country: IT (occurrence: IT)
  Receive Date: 20200121
  Receipt Date: 20200121
  Transmission Date: 20200409
  Serious: Yes (Other)
  Sender: FDA-Public Use
  Company Number: IT-MYLANLABS-2020M1004894

PATIENT
  Age: 29 Year
  Sex: Male

DRUGS (7)
  1. FOSTER [Suspect]
     Active Substance: BECLOMETHASONE\FORMOTEROL
     Indication: RESPIRATORY DISORDER
     Dosage: 1 DF, BID
     Route: 055
  2. SALBUTAMOL                         /00139502/ [Concomitant]
     Active Substance: ALBUTEROL SULFATE
     Indication: RESPIRATORY DISORDER
     Dosage: UNK
  3. CORTISONE [Concomitant]
     Active Substance: CORTISONE
     Indication: RESPIRATORY DISORDER
     Dosage: UNK
     Route: 042
  4. BENACTIV GOLA [Concomitant]
     Active Substance: FLURBIPROFEN
     Indication: THROAT TIGHTNESS
     Dosage: UNK
  5. OMEPRAZOLE. [Suspect]
     Active Substance: OMEPRAZOLE
     Indication: RESPIRATORY DISORDER
     Dosage: UNK
  6. PREDNISONE. [Suspect]
     Active Substance: PREDNISONE
     Dosage: 1 DF, UNK
  7. PREDNISONE. [Suspect]
     Active Substance: PREDNISONE
     Indication: RESPIRATORY DISORDER
     Dosage: 0.5 MG, UNK

REACTIONS (2)
  - Palpitations [Unknown]
  - Off label use [Recovered/Resolved]
